FAERS Safety Report 10270775 (Version 1)
Quarter: 2014Q2

REPORT INFORMATION
  Report Type: Spontaneous
  Country: IN (occurrence: None)
  Receive Date: 20140627
  Receipt Date: 20140627
  Transmission Date: 20141212
  Serious: Yes (Other)
  Sender: FDA-Public Use
  Company Number: AUR-APL-2014-06810

PATIENT
  Age: 35 Year
  Sex: Female

DRUGS (3)
  1. RISPERIDONE [Suspect]
     Indication: MANIA
  2. QUETIAPINE (QUETIAPINE) UNKNOWN, UNKNOWN [Suspect]
     Indication: MANIA
  3. OLANZAPINE (OLANZAPINE) [Suspect]
     Indication: MANIA

REACTIONS (8)
  - Tardive dyskinesia [None]
  - Withdrawal syndrome [None]
  - Blood glucose abnormal [None]
  - Exposure during pregnancy [None]
  - Drug ineffective [None]
  - Sedation [None]
  - Agitation [None]
  - Insomnia [None]
